FAERS Safety Report 8243738 (Version 3)
Quarter: 2014Q3

REPORT INFORMATION
  Report Type: Spontaneous
  Country: US (occurrence: US)
  Receive Date: 20111114
  Receipt Date: 20140718
  Transmission Date: 20150326
  Serious: Yes (Death, Hospitalization)
  Sender: FDA-Public Use
  Company Number: US-GLAXOSMITHKLINE-B0762133A

PATIENT
  Sex: Male

DRUGS (2)
  1. ROSIGLITAZONE MALEATE. [Suspect]
     Active Substance: ROSIGLITAZONE MALEATE
     Indication: DIABETES MELLITUS
     Route: 048
     Dates: start: 200108, end: 200708
  2. AVANDIA [Suspect]
     Active Substance: ROSIGLITAZONE MALEATE
     Indication: DIABETES MELLITUS
     Dosage: 4MG PER DAY
     Route: 048
     Dates: start: 2001, end: 2007

REACTIONS (11)
  - Coronary artery disease [Unknown]
  - Atrial fibrillation [Unknown]
  - Cardiac assistance device user [Unknown]
  - Chest pain [Unknown]
  - Sick sinus syndrome [Unknown]
  - Atrial flutter [Unknown]
  - Transient ischaemic attack [Unknown]
  - Angina pectoris [Unknown]
  - Pneumonia [Fatal]
  - Cardiac failure congestive [Fatal]
  - Cerebrovascular accident [Unknown]
